FAERS Safety Report 5735238-4 (Version None)
Quarter: 2008Q2

REPORT INFORMATION
  Report Type: 
  Country: None (occurrence: None)
  Receive Date: 20080512
  Receipt Date: 20080430
  Transmission Date: 20081010
  Serious: No
  Sender: FDA-Public Use
  Company Number: AT-ASTRAZENECA-2008PK00545

PATIENT
  Age: 63 Year
  Sex: Female
  Weight: 63 kg

DRUGS (2)
  1. SEROQUEL [Suspect]
     Route: 048
     Dates: start: 20050726, end: 20070930
  2. SEROQUEL [Suspect]
     Route: 048

REACTIONS (9)
  - BLOOD CHOLESTEROL INCREASED [None]
  - DRY MOUTH [None]
  - HEPATIC STEATOSIS [None]
  - LIGAMENT SPRAIN [None]
  - MENISCUS LESION [None]
  - MUSCULOSKELETAL STIFFNESS [None]
  - PLANTAR FASCIITIS [None]
  - TENDON RUPTURE [None]
  - WEIGHT INCREASED [None]
